FAERS Safety Report 7235467-7 (Version None)
Quarter: 2011Q1

REPORT INFORMATION
  Report Type: 
  Country: None (occurrence: None)
  Receive Date: 20110114
  Receipt Date: 20110114
  Transmission Date: 20110831
  Serious: Yes (Other)
  Sender: FDA-Public Use
  Company Number: None

PATIENT
  Age: 43 Year
  Sex: Female
  Weight: 195.0467 kg

DRUGS (1)
  1. CELEXA [Suspect]
     Indication: DEPRESSION
     Dosage: 20 MG 1 TMER PER DAY PO
     Route: 048
     Dates: start: 20101011, end: 20110113

REACTIONS (3)
  - BLINDNESS UNILATERAL [None]
  - GLARE [None]
  - VISION BLURRED [None]
